FAERS Safety Report 21727377 (Version 2)
Quarter: 2022Q4

REPORT INFORMATION
  Report Type: Other
  Country: JP (occurrence: None)
  Receive Date: 20221214
  Receipt Date: 20221220
  Transmission Date: 20230113
  Serious: Yes (Other)
  Sender: FDA-Public Use
  Company Number: JP-ROCHE-3240635

PATIENT
  Age: 39 Year
  Sex: Male

DRUGS (2)
  1. BEVACIZUMAB [Suspect]
     Active Substance: BEVACIZUMAB
     Indication: Retinal vein occlusion
     Route: 050
  2. BEVACIZUMAB [Suspect]
     Active Substance: BEVACIZUMAB
     Indication: Glaucoma

REACTIONS (3)
  - Macular hole [Unknown]
  - Off label use [Unknown]
  - Off label use [Unknown]
